FAERS Safety Report 7794616-2 (Version None)
Quarter: 2011Q4

REPORT INFORMATION
  Report Type: 
  Country: None (occurrence: None)
  Receive Date: 20111004
  Receipt Date: 20110921
  Transmission Date: 20120403
  Serious: No
  Sender: FDA-Public Use
  Company Number: US-B.I. PHARMACEUTICALS,INC./RIDGEFIELD-2011-BP-16460BP

PATIENT
  Sex: Female

DRUGS (4)
  1. SPIRIVA [Suspect]
     Indication: COUGH
     Route: 055
     Dates: start: 20110617
  2. CYMBALTA [Concomitant]
     Indication: ARTHRITIS
     Dosage: 30 MG
     Route: 048
     Dates: start: 20070101
  3. CETIRIZINE HCL [Concomitant]
     Dosage: 10 MG
  4. RANITIDINE [Concomitant]
     Indication: GASTROOESOPHAGEAL REFLUX DISEASE
     Dosage: 300 MG
     Route: 048
     Dates: start: 20060101

REACTIONS (1)
  - BLOOD PRESSURE INCREASED [None]
